FAERS Safety Report 14597482 (Version 3)
Quarter: 2018Q2

REPORT INFORMATION
  Report Type: Report from Study
  Country: KR (occurrence: KR)
  Receive Date: 20180305
  Receipt Date: 20180419
  Transmission Date: 20180711
  Serious: Yes (Hospitalization)
  Sender: FDA-Public Use
  Company Number: KR-ROCHE-2078050

PATIENT
  Age: 61 Year
  Sex: Male
  Weight: 55 kg

DRUGS (49)
  1. NYSTATIN. [Concomitant]
     Active Substance: NYSTATIN
     Indication: PROPHYLAXIS
     Route: 048
     Dates: start: 20180220, end: 20180227
  2. PERIDOL (SOUTH KOREA) [Concomitant]
     Indication: ANXIETY
     Route: 030
     Dates: start: 20180221, end: 20180221
  3. MEGACE F [Concomitant]
     Indication: DECREASED APPETITE
     Route: 048
     Dates: start: 20170823
  4. PANCRON (PANCREATIN) [Concomitant]
     Indication: DYSPEPSIA
     Route: 048
     Dates: start: 20171227
  5. LANSTON LFDT [Concomitant]
     Active Substance: LANSOPRAZOLE
     Indication: GASTRITIS PROPHYLAXIS
     Route: 048
     Dates: start: 20180213, end: 20180220
  6. JURNISTA [Concomitant]
     Active Substance: HYDROMORPHONE HYDROCHLORIDE
     Indication: TUMOUR PAIN
     Dosage: JURNISTA SE
     Route: 048
     Dates: start: 20180214, end: 20180320
  7. MIACALCIC [Concomitant]
     Active Substance: CALCITONIN SALMON
     Indication: HYPERCALCAEMIA
     Route: 042
     Dates: start: 20180220, end: 20180222
  8. LIDOMEX [Concomitant]
     Active Substance: PREDNISOLONE VALERATE ACETATE
     Indication: PROPHYLAXIS
     Route: 062
     Dates: start: 20180222, end: 20180226
  9. SYLCON [Concomitant]
     Active Substance: CALCIUM POLYCARBOPHIL
     Indication: CONSTIPATION
     Route: 048
     Dates: start: 20180223
  10. CAROL-F [Concomitant]
     Indication: TUMOUR PAIN
     Route: 048
     Dates: start: 20180225
  11. IRCODON [Concomitant]
     Active Substance: OXYCODONE HYDROCHLORIDE
     Indication: TUMOUR PAIN
     Route: 048
     Dates: start: 20170419, end: 20180225
  12. DIABEX [Concomitant]
     Active Substance: METFORMIN HYDROCHLORIDE
     Indication: TYPE 2 DIABETES MELLITUS
     Route: 048
     Dates: start: 20171206
  13. BETMIGA [Concomitant]
     Active Substance: MIRABEGRON
     Indication: BENIGN PROSTATIC HYPERPLASIA
     Route: 048
     Dates: start: 20171220
  14. MINIRIN [Concomitant]
     Active Substance: DESMOPRESSIN ACETATE
     Indication: BENIGN PROSTATIC HYPERPLASIA
     Route: 048
     Dates: start: 20180117
  15. TYLENOL [Concomitant]
     Active Substance: ACETAMINOPHEN
     Indication: TUMOUR PAIN
     Dosage: TYLENOL ER
     Route: 048
     Dates: start: 20180207
  16. LASIX [Concomitant]
     Active Substance: FUROSEMIDE
     Indication: PROPHYLAXIS
     Route: 042
     Dates: start: 20180220, end: 20180224
  17. CODEINE [Concomitant]
     Active Substance: CODEINE
     Indication: PRODUCTIVE COUGH
     Route: 048
     Dates: start: 20170118
  18. HARNAL [Concomitant]
     Active Substance: TAMSULOSIN HYDROCHLORIDE
     Indication: BENIGN PROSTATIC HYPERPLASIA
     Route: 048
     Dates: start: 20171220
  19. PACKED RBC [Concomitant]
     Indication: ANAEMIA
     Route: 042
     Dates: start: 20180224, end: 20180224
  20. ERDOS [Concomitant]
     Active Substance: ERDOSTEINE
     Indication: PRODUCTIVE COUGH
     Route: 048
     Dates: start: 20170816
  21. MOTILITONE [Concomitant]
     Active Substance: HERBALS
     Indication: DYSPEPSIA
     Route: 048
     Dates: start: 20180103
  22. TAZOPERAN [Concomitant]
     Indication: INFECTION PROPHYLAXIS
     Route: 042
     Dates: start: 20180220, end: 20180226
  23. PANORIN [Concomitant]
     Indication: PROPHYLAXIS
     Route: 042
     Dates: start: 20180224, end: 20180224
  24. MAGNESIUM OXIDE. [Concomitant]
     Active Substance: MAGNESIUM OXIDE
     Indication: CONSTIPATION
     Route: 048
     Dates: start: 20170621
  25. DUPHALAC EASY [Concomitant]
     Indication: CONSTIPATION
     Dosage: DUPHALAC EASY SYRUP
     Route: 048
     Dates: start: 20170816
  26. MYPOL (SOUTH KOREA) [Concomitant]
     Indication: TUMOUR PAIN
     Route: 048
     Dates: start: 20170828, end: 20180213
  27. MYPOL (SOUTH KOREA) [Concomitant]
     Route: 048
     Dates: start: 20170109, end: 20180213
  28. TAGAMET [Concomitant]
     Active Substance: CIMETIDINE
     Indication: PROPHYLAXIS
     Route: 048
     Dates: start: 20171128
  29. HUMALOG MIX [Concomitant]
     Active Substance: INSULIN LISPRO
     Indication: TYPE 2 DIABETES MELLITUS
     Dosage: HUMALOG MIX 50 KWIKPEN1
     Route: 058
     Dates: start: 20171206
  30. DULCOLAX-S [Concomitant]
     Indication: CONSTIPATION
     Route: 048
     Dates: start: 20180103
  31. STILNOX CR [Concomitant]
     Active Substance: ZOLPIDEM TARTRATE
     Indication: ANXIETY
     Route: 048
     Dates: start: 20180131
  32. JURNISTA [Concomitant]
     Active Substance: HYDROMORPHONE HYDROCHLORIDE
     Indication: TUMOUR PAIN
     Route: 048
     Dates: start: 20180225
  33. TARGIN [Concomitant]
     Active Substance: NALOXONE HYDROCHLORIDE\OXYCODONE HYDROCHLORIDE
     Indication: TUMOUR PAIN
     Dosage: TARGIN CR 40/20
     Route: 048
     Dates: start: 20171108, end: 20180213
  34. SEROQUEL [Concomitant]
     Active Substance: QUETIAPINE FUMARATE
     Indication: ANXIETY
     Route: 048
     Dates: start: 20180225
  35. ATEZOLIZUMAB. [Suspect]
     Active Substance: ATEZOLIZUMAB
     Indication: NON-SMALL CELL LUNG CANCER
     Dosage: ON 07/FEB/2018 AT 06:50, HE RECEIVED THE MOST RECENT DOSE OF ATEZOLIZUMAB PRIOR TO RHABDOMYOLYSIS.
     Route: 042
     Dates: start: 20171122
  36. SYNATURA [Concomitant]
     Indication: PRODUCTIVE COUGH
     Route: 048
     Dates: start: 20171122
  37. MORPHINE SULFATE. [Concomitant]
     Active Substance: MORPHINE SULFATE
     Indication: TUMOUR PAIN
     Route: 042
     Dates: start: 20180124, end: 20180324
  38. MORPHINE SULFATE. [Concomitant]
     Active Substance: MORPHINE SULFATE
     Indication: TUMOUR PAIN
     Route: 042
     Dates: start: 20180213
  39. GELMA [Concomitant]
     Indication: DYSPEPSIA
     Route: 048
     Dates: start: 20180214
  40. TRIDOL [Concomitant]
     Active Substance: TRAMADOL HYDROCHLORIDE
     Indication: TUMOUR PAIN
     Route: 042
     Dates: start: 20180222, end: 20180222
  41. FEROBA-YOU SR [Concomitant]
     Indication: ANAEMIA PROPHYLAXIS
     Route: 048
     Dates: start: 20171122, end: 20180320
  42. LOPERAMIDE [Concomitant]
     Active Substance: LOPERAMIDE
     Indication: PROPHYLAXIS AGAINST DIARRHOEA
     Route: 048
     Dates: start: 20180227, end: 20180303
  43. MTIG7192A [Suspect]
     Active Substance: INVESTIGATIONAL PRODUCT
     Indication: NON-SMALL CELL LUNG CANCER
     Dosage: ON 07/FEB/2018 AT 15:50, HE RECEIVED THE MOST RECENT DOSE OF MTIG7192A (ANTI T-CELL IMMUNORECEPTOR I
     Route: 042
     Dates: start: 20171122
  44. DULCOLAX-S [Concomitant]
     Route: 048
     Dates: start: 20170404
  45. VENITOL [Concomitant]
     Indication: TUMOUR PAIN
     Route: 048
     Dates: start: 20180225
  46. PROCTOSEDYL (SOUTH KOREA) [Concomitant]
     Indication: PROPHYLAXIS
     Route: 062
     Dates: start: 20180225
  47. LYRICA [Concomitant]
     Active Substance: PREGABALIN
     Indication: TUMOUR PAIN
     Route: 048
     Dates: start: 20171122
  48. RHINATHIOL (SOUTH KOREA) [Concomitant]
     Indication: PRODUCTIVE COUGH
     Route: 048
     Dates: start: 20180117
  49. K-CONTIN [Concomitant]
     Indication: PROPHYLAXIS
     Route: 048
     Dates: start: 20180223, end: 20180224

REACTIONS (1)
  - Rhabdomyolysis [Recovered/Resolved]

NARRATIVE: CASE EVENT DATE: 20180220
